FAERS Safety Report 20962425 (Version 2)
Quarter: 2022Q3

REPORT INFORMATION
  Report Type: Spontaneous
  Country: US (occurrence: US)
  Receive Date: 20220615
  Receipt Date: 20220913
  Transmission Date: 20221027
  Serious: Yes (Hospitalization, Other)
  Sender: FDA-Public Use
  Company Number: US-BRISTOL-MYERS SQUIBB COMPANY-2022-052507

PATIENT
  Age: 80 Year
  Sex: Male

DRUGS (2)
  1. REVLIMID [Suspect]
     Active Substance: LENALIDOMIDE
     Indication: Plasma cell myeloma
     Dosage: DAILY ON DAYS 1-21 EVERY 28 DAYS
     Route: 048
     Dates: start: 20190801
  2. REVLIMID [Suspect]
     Active Substance: LENALIDOMIDE
     Dosage: DAYS 1-14 Q 21 DAYS
     Route: 048
     Dates: start: 20220627, end: 20220907

REACTIONS (5)
  - Diarrhoea [Unknown]
  - Pneumonia [Unknown]
  - White blood cell count decreased [Unknown]
  - Dyspnoea [Unknown]
  - Off label use [Unknown]

NARRATIVE: CASE EVENT DATE: 20220711
